FAERS Safety Report 7928594-X (Version None)
Quarter: 2011Q4

REPORT INFORMATION
  Report Type: 
  Country: None (occurrence: None)
  Receive Date: 20111118
  Receipt Date: 20111114
  Transmission Date: 20120403
  Serious: Yes (Death)
  Sender: FDA-Public Use
  Company Number: US-MEDIMMUNE-MEDI-0013908

PATIENT
  Sex: Female
  Weight: 0.54 kg

DRUGS (3)
  1. SYNAGIS [Suspect]
     Dates: start: 20111104, end: 20111104
  2. OXYGEN [Concomitant]
  3. CORTICOSTEROIDS [Concomitant]
     Dates: start: 20111020, end: 20111026

REACTIONS (1)
  - DEATH [None]
